FAERS Safety Report 7882079 (Version 7)
Quarter: 2013Q3

REPORT INFORMATION
  Report Type: Report from Study
  Country: US (occurrence: US)
  Receive Date: 20110401
  Receipt Date: 20130802
  Transmission Date: 20140515
  Serious: Yes (Hospitalization)
  Sender: FDA-Public Use
  Company Number: US-PFIZER INC-2011054100

PATIENT
  Age: 16 Year
  Sex: Female
  Weight: 68 kg

DRUGS (4)
  1. PNEUMOCOCCAL 13-VALENT CONJUGATE VACCINE [Suspect]
     Indication: IMMUNISATION
     Dosage: 1 DF, SINGLE
     Route: 030
     Dates: start: 20101110, end: 20101110
  2. MOTRIN [Suspect]
     Indication: SICKLE CELL ANAEMIA
     Dosage: UNK
     Route: 065
     Dates: end: 20110308
  3. MS CONTIN [Suspect]
     Indication: SICKLE CELL ANAEMIA
     Dosage: UNK
     Route: 048
     Dates: end: 20110308
  4. FOLIC ACID [Concomitant]
     Indication: SICKLE CELL ANAEMIA
     Dosage: UNK
     Dates: start: 1995

REACTIONS (6)
  - Overdose [Recovered/Resolved]
  - Unresponsive to stimuli [Recovered/Resolved]
  - Acute chest syndrome [Recovered/Resolved]
  - Respiratory failure [Recovered/Resolved]
  - Hypocalcaemia [Recovered/Resolved]
  - Renal failure [Recovered/Resolved]
